FAERS Safety Report 6699077-2 (Version None)
Quarter: 2010Q2

REPORT INFORMATION
  Report Type: 
  Country: None (occurrence: None)
  Receive Date: 20100423
  Receipt Date: 20100416
  Transmission Date: 20101027
  Serious: Yes (Death)
  Sender: FDA-Public Use
  Company Number: 2010SP008256

PATIENT
  Age: 73 Year
  Sex: Male

DRUGS (8)
  1. REMERON [Suspect]
     Indication: DEPRESSION
     Dosage: 15 MG; QD; PO; 30 MG; QD; PO;  ;PO
     Route: 048
     Dates: start: 20091210, end: 20100113
  2. REMERON [Suspect]
     Indication: DEPRESSION
     Dosage: 15 MG; QD; PO; 30 MG; QD; PO;  ;PO
     Route: 048
     Dates: start: 20100114, end: 20100201
  3. REMERON [Suspect]
     Indication: DEPRESSION
     Dosage: 15 MG; QD; PO; 30 MG; QD; PO;  ;PO
     Route: 048
     Dates: start: 20100312
  4. DEPAS [Concomitant]
  5. MAGMITT [Concomitant]
  6. LOXONIN [Concomitant]
  7. ATINES [Concomitant]
  8. HALCION [Concomitant]

REACTIONS (5)
  - ASPHYXIA [None]
  - COMPLETED SUICIDE [None]
  - DIZZINESS [None]
  - DYSGEUSIA [None]
  - THIRST [None]
